FAERS Safety Report 4360122-0 (Version None)
Quarter: 2004Q2

REPORT INFORMATION
  Report Type: 
  Country: None (occurrence: None)
  Receive Date: 20040519
  Receipt Date: 20040510
  Transmission Date: 20050107
  Serious: Yes (Other)
  Sender: FDA-Public Use
  Company Number: PHBS2004CA06293

PATIENT
  Age: 63 Year
  Sex: Female
  Weight: 44 kg

DRUGS (3)
  1. AREDIA [Suspect]
     Indication: BONE DISORDER
     Route: 042
  2. POTASSIUM [Concomitant]
     Dosage: UNK, QW2
     Route: 042
  3. MAGNESIUM [Concomitant]
     Dosage: UNK, QW2
     Route: 042

REACTIONS (2)
  - BLOOD CREATININE ABNORMAL [None]
  - DEHYDRATION [None]
